FAERS Safety Report 5765077-X (Version None)
Quarter: 2008Q2

REPORT INFORMATION
  Report Type: 
  Country: None (occurrence: None)
  Receive Date: 20080611
  Receipt Date: 20080601
  Transmission Date: 20081010
  Serious: Yes (Hospitalization)
  Sender: FDA-Public Use
  Company Number: IL-ELI_LILLY_AND_COMPANY-IL200805000780

PATIENT
  Sex: Female
  Weight: 109 kg

DRUGS (11)
  1. BYETTA [Suspect]
     Dosage: 5 UG, 2/D
     Route: 065
     Dates: start: 20080301
  2. BYETTA [Suspect]
     Dosage: 5 UG, DAILY (1/D)
     Route: 065
  3. DIOVAN [Concomitant]
     Dosage: 80 MG, DAILY (1/D)
     Route: 048
  4. LIPITOR [Concomitant]
     Dosage: 20 MG, DAILY (1/D)
     Route: 048
  5. CARTIA XT [Concomitant]
     Dosage: 100 MG, DAILY (1/D)
     Route: 048
  6. CARDILOC [Concomitant]
     Dosage: 5 MG, DAILY (1/D)
     Route: 048
  7. NIFEDIPINE [Concomitant]
     Dosage: 260 MG, DAILY (1/D)
     Route: 065
  8. OMEPRADEX [Concomitant]
     Dosage: 20 MG, DAILY (1/D)
     Route: 065
  9. GLUCOPHAGE [Concomitant]
     Dosage: 850 MG, DAILY (1/D)
     Route: 065
  10. SEDURAL [Concomitant]
     Dosage: 100 MG, UNKNOWN
     Route: 065
  11. ARCOXIA [Concomitant]
     Dosage: 120 MG, UNKNOWN
     Route: 065

REACTIONS (3)
  - ABDOMINAL PAIN [None]
  - ILEUS [None]
  - INCREASED APPETITE [None]
